FAERS Safety Report 7680957-6 (Version None)
Quarter: 2011Q3

REPORT INFORMATION
  Report Type: 
  Country: None (occurrence: None)
  Receive Date: 20110812
  Receipt Date: 20110728
  Transmission Date: 20111222
  Serious: Yes (Hospitalization)
  Sender: FDA-Public Use
  Company Number: HU-ELI_LILLY_AND_COMPANY-HU201108000817

PATIENT
  Sex: Male
  Weight: 59 kg

DRUGS (12)
  1. TRAMADOL HCL [Concomitant]
     Dosage: UNK
     Dates: start: 20091024, end: 20091119
  2. MEGESTROL ACETATE [Concomitant]
     Dosage: UNK
     Dates: start: 20091102
  3. KALIUM-R [Concomitant]
     Dosage: UNK
     Dates: start: 20091106
  4. NEORECORMON [Concomitant]
     Dosage: UNK
     Dates: start: 20100113
  5. FERRO-FOLGAMMA [Concomitant]
     Dosage: UNK
     Dates: start: 20091221
  6. HYGROTON [Concomitant]
     Dosage: UNK
     Dates: start: 20090820, end: 20091118
  7. FURON [Concomitant]
     Dosage: UNK
     Dates: start: 20091106
  8. BISOBLOC [Concomitant]
     Dosage: UNK
     Dates: start: 20090820
  9. CARBOPLATIN [Suspect]
     Indication: NON-SMALL CELL LUNG CANCER
     Dosage: 790 MG, EVERY THREE WEEKS
     Route: 042
     Dates: start: 20091117
  10. BEVACIZUMAB [Suspect]
     Indication: NON-SMALL CELL LUNG CANCER
     Dosage: 900 MG, EVERY THREE WEEKS
     Route: 042
     Dates: start: 20091117
  11. GEMCITABINE HYDROCHLORIDE [Suspect]
     Indication: NON-SMALL CELL LUNG CANCER
     Dosage: 2077 MG, DAYS 1 AND 8 EVERY THREE WEEKS
     Route: 042
     Dates: start: 20091117
  12. FRAGMIN [Concomitant]
     Dosage: UNK
     Dates: start: 20091024, end: 20091125

REACTIONS (5)
  - NEUTROPENIA [None]
  - THROMBOCYTOPENIA [None]
  - EPISTAXIS [None]
  - ANAEMIA [None]
  - LEUKOPENIA [None]
